FAERS Safety Report 8022222-3 (Version None)
Quarter: 2012Q1

REPORT INFORMATION
  Report Type: 
  Country: None (occurrence: None)
  Receive Date: 20120104
  Receipt Date: 20111221
  Transmission Date: 20120608
  Serious: Yes (Hospitalization, Other)
  Sender: FDA-Public Use
  Company Number: US-JNJFOC-20090301655

PATIENT
  Sex: Male
  Weight: 81.65 kg

DRUGS (5)
  1. REMICADE [Suspect]
     Dates: start: 20070901
  2. REMICADE [Suspect]
     Indication: CROHN'S DISEASE
     Dates: start: 20070401
  3. REMICADE [Suspect]
     Dates: start: 20070601
  4. REMICADE [Suspect]
     Dates: start: 20070501
  5. PREDNISONE TAB [Concomitant]

REACTIONS (6)
  - LUNG INFECTION PSEUDOMONAL [None]
  - MYOPATHY [None]
  - ENTEROCOCCAL INFECTION [None]
  - MONONEUROPATHY [None]
  - EOSINOPHILIC PNEUMONIA ACUTE [None]
  - INTERSTITIAL LUNG DISEASE [None]
